FAERS Safety Report 6927109-2 (Version None)
Quarter: 2010Q3

REPORT INFORMATION
  Report Type: 
  Country: None (occurrence: None)
  Receive Date: 20100816
  Receipt Date: 20100729
  Transmission Date: 20110219
  Serious: No
  Sender: FDA-Public Use
  Company Number: US-ABBOTT-10P-163-0660598-00

PATIENT
  Sex: Female
  Weight: 78.996 kg

DRUGS (9)
  1. SIMCOR [Suspect]
     Indication: DYSLIPIDAEMIA
     Dosage: 500/20MG DAILY AT BEDTIME
     Route: 048
     Dates: start: 20090101, end: 20090301
  2. SIMCOR [Suspect]
     Indication: FAMILIAL RISK FACTOR
     Dosage: 500/20MG DAILY AT BEDTIME
     Route: 048
     Dates: start: 20091001, end: 20091101
  3. SIMCOR [Suspect]
     Dosage: 500/20MG DAILY AT BEDTIME
     Route: 048
     Dates: start: 20091201, end: 20100329
  4. LORCET-HD [Concomitant]
     Indication: PAIN
     Route: 048
  5. FLEXERIL [Concomitant]
     Indication: PAIN
     Route: 048
  6. ASPIRIN [Concomitant]
     Indication: PRODUCT USED FOR UNKNOWN INDICATION
     Dosage: DAILY PRIOR TO DOSE OF SIMCOR
     Route: 048
  7. LORAZEPAM [Concomitant]
     Indication: STRESS
     Route: 048
  8. LORAZEPAM [Concomitant]
     Indication: ANXIETY
  9. ECHENACEA [Concomitant]
     Indication: PRODUCT USED FOR UNKNOWN INDICATION
     Route: 048

REACTIONS (2)
  - FEELING ABNORMAL [None]
  - MEMORY IMPAIRMENT [None]
